FAERS Safety Report 5377895-0 (Version None)
Quarter: 2007Q3

REPORT INFORMATION
  Report Type: 
  Country: None (occurrence: None)
  Receive Date: 20070703
  Receipt Date: 20070628
  Transmission Date: 20080115
  Serious: Yes (Death)
  Sender: FDA-Public Use
  Company Number: US-MERCK-0706USA01279

PATIENT
  Age: 82 Year
  Sex: Female
  Weight: 68 kg

DRUGS (2)
  1. SINGULAIR [Suspect]
     Indication: HYPERSENSITIVITY
     Route: 048
  2. ACTONEL [Suspect]
     Indication: OSTEOPOROSIS
     Route: 065

REACTIONS (1)
  - ARTERIOSCLEROSIS [None]
